FAERS Safety Report 12545050 (Version 2)
Quarter: 2016Q3

REPORT INFORMATION
  Report Type: Report from Study
  Country: US (occurrence: US)
  Receive Date: 20160711
  Receipt Date: 20160922
  Transmission Date: 20161109
  Serious: Yes (Hospitalization, Other)
  Sender: FDA-Public Use
  Company Number: US-JNJFOC-20160519218

PATIENT
  Age: 63 Year
  Sex: Female

DRUGS (7)
  1. OMEPRAZOLE. [Concomitant]
     Active Substance: OMEPRAZOLE
  2. PREDNISONE. [Concomitant]
     Active Substance: PREDNISONE
  3. IMBRUVICA [Suspect]
     Active Substance: IBRUTINIB
     Indication: B-CELL LYMPHOMA STAGE II
     Route: 048
     Dates: start: 20140312, end: 201604
  4. XARELTO [Concomitant]
     Active Substance: RIVAROXABAN
  5. IMBRUVICA [Suspect]
     Active Substance: IBRUTINIB
     Indication: B-CELL LYMPHOMA STAGE II
     Route: 048
     Dates: start: 2016
  6. SYNTHROID [Concomitant]
     Active Substance: LEVOTHYROXINE SODIUM
  7. ZOVIRAX [Concomitant]
     Active Substance: ACYCLOVIR

REACTIONS (7)
  - Gastrooesophageal reflux disease [Recovering/Resolving]
  - Off label use [Not Recovered/Not Resolved]
  - Febrile neutropenia [Recovering/Resolving]
  - Oesophagitis haemorrhagic [Unknown]
  - Platelet count abnormal [Recovered/Resolved]
  - Product use issue [Not Recovered/Not Resolved]
  - White blood cell count decreased [Recovered/Resolved]

NARRATIVE: CASE EVENT DATE: 20140312
